FAERS Safety Report 10056343 (Version 1)
Quarter: 2014Q2

REPORT INFORMATION
  Report Type: Spontaneous
  Country: BR (occurrence: BR)
  Receive Date: 20140403
  Receipt Date: 20140403
  Transmission Date: 20141212
  Serious: Yes (Hospitalization)
  Sender: FDA-Public Use
  Company Number: BR-DSJP-DSJ-2014-102835AA

PATIENT
  Sex: 0

DRUGS (7)
  1. OLMESARTAN MEDOXOMIL [Suspect]
     Indication: HYPERTENSION
     Dosage: 20MG/DAY
     Route: 048
     Dates: start: 201402, end: 201403
  2. OLMESARTAN MEDOXOMIL [Suspect]
     Dosage: 40MG/DAY
     Dates: start: 201403
  3. MEDICINES [Suspect]
     Indication: SYSTEMIC LUPUS ERYTHEMATOSUS
     Dosage: UNK
     Route: 048
     Dates: start: 201402
  4. LEVOTHYROXINE SODIUM [Concomitant]
     Dosage: UNK
     Route: 065
  5. ESTRADIOL/NORETHINDRONE ACETATE [Concomitant]
     Dosage: UNK
     Route: 065
  6. ALENDRONATE [Concomitant]
     Dosage: UNK
     Route: 065
  7. MEDICINES [Concomitant]
     Dosage: UNK
     Route: 065

REACTIONS (5)
  - Systemic lupus erythematosus [Unknown]
  - Blood pressure increased [Recovered/Resolved]
  - Weight decreased [Not Recovered/Not Resolved]
  - Back disorder [Not Recovered/Not Resolved]
  - Fatigue [Not Recovered/Not Resolved]
